FAERS Safety Report 16889665 (Version 1)
Quarter: 2019Q4

REPORT INFORMATION
  Report Type: Spontaneous
  Country: SE (occurrence: SE)
  Receive Date: 20191007
  Receipt Date: 20191007
  Transmission Date: 20200122
  Serious: Yes (Other)
  Sender: FDA-Public Use
  Company Number: SE-PFIZER INC-2019425532

PATIENT
  Sex: Female

DRUGS (1)
  1. TERRA-CORTRIL POLYMYXIN B [Suspect]
     Active Substance: HYDROCORTISONE\OXYTETRACYCLINE HYDROCHLORIDE\POLYMYXIN B SULFATE
     Dosage: UNK

REACTIONS (4)
  - Eye movement disorder [Unknown]
  - Vision blurred [Unknown]
  - Strabismus [Unknown]
  - Visual impairment [Unknown]
